FAERS Safety Report 5600313-1 (Version None)
Quarter: 2007Q4

REPORT INFORMATION
  Report Type: 
  Country: None (occurrence: None)
  Receive Date: 20071226
  Receipt Date: 20070330
  Transmission Date: 20080405
  Serious: Yes (Other)
  Sender: FDA-Public Use
  Company Number: 239247

PATIENT
  Age: 53 Year
  Sex: Male

DRUGS (1)
  1. RAPTIVA [Suspect]
     Indication: PSORIASIS
     Dosage: 80 MG, SINGLE, SUBCUTANEOUS
     Route: 058
     Dates: start: 20070213, end: 20070213

REACTIONS (4)
  - HEADACHE [None]
  - PLATELET COUNT DECREASED [None]
  - PYREXIA [None]
  - RED BLOOD CELL COUNT INCREASED [None]
